FAERS Safety Report 8488718-5 (Version None)
Quarter: 2012Q2

REPORT INFORMATION
  Report Type: 
  Country: None (occurrence: None)
  Receive Date: 20120626
  Receipt Date: 20120615
  Transmission Date: 20120825
  Serious: Yes (Hospitalization, Other)
  Sender: FDA-Public Use
  Company Number: 2010JP000243

PATIENT
  Age: 23 Year
  Sex: Female
  Weight: 48.7 kg

DRUGS (56)
  1. VEEN D (CALCIUM CHLORIDE DIHYDRATE, GLUCOSE, POTASSIUM CHLORIDE, SODIU [Concomitant]
  2. DEXTROSE 5% [Concomitant]
  3. LANSOPRAZOLE [Concomitant]
  4. TACROLIMUS [Suspect]
     Indication: LUPUS NEPHRITIS
     Dosage: 3 MG, /D, ORAL ; 2 MG, /D, ORAL ; 3 MG, /D, ORAL
     Route: 048
     Dates: start: 20090706
  5. TACROLIMUS [Suspect]
     Indication: LUPUS NEPHRITIS
     Dosage: 3 MG, /D, ORAL ; 2 MG, /D, ORAL ; 3 MG, /D, ORAL
     Route: 048
     Dates: start: 20070723, end: 20090325
  6. TACROLIMUS [Suspect]
     Indication: LUPUS NEPHRITIS
     Dosage: 3 MG, /D, ORAL ; 2 MG, /D, ORAL ; 3 MG, /D, ORAL
     Route: 048
     Dates: start: 20090326, end: 20090705
  7. SULFAMETHOXAZOLE AND TRIMETHOPRIM [Concomitant]
  8. PRIMPERAN INJ [Concomitant]
  9. BEZATOL (BEZAFIBRATE) [Concomitant]
  10. LOXONIN (LOXOPROFEN) [Concomitant]
  11. PENTAZOCINE LACTATE [Concomitant]
  12. LIPIDIL [Concomitant]
  13. KAYTWO N (MENATETRENONE) [Concomitant]
  14. MOHRUS L (KETOPROFEN) [Concomitant]
  15. ESPO (EPOETIN ALFA) [Concomitant]
  16. ALFAROL (ALFACALCIDOL) [Concomitant]
  17. VITAMEDIN /00176001/ (CYANOCOBALAMIN, PYRIDOXINE HYDROCHLORIDE, THIAMI [Concomitant]
  18. DIOVAN [Concomitant]
  19. CETZON (CEFDINIR) [Concomitant]
  20. PREDNISOLONE [Suspect]
     Indication: LUPUS NEPHRITIS
     Dosage: 35 MG, /D, ORAL
     Route: 048
     Dates: end: 20070802
  21. DECADRON [Suspect]
     Indication: LUPUS NEPHRITIS
     Dosage: 5.5 MG, /D, ORAL
     Route: 048
     Dates: start: 20070731, end: 20080225
  22. LASIX [Concomitant]
  23. LIPITOR [Concomitant]
  24. OMEPRAZOLE [Concomitant]
  25. MUCOSTA (REBAMIPIDE) [Concomitant]
  26. MEROPEN (MEROPENEM) [Concomitant]
  27. BREDININ (MIZORBINE) [Concomitant]
  28. LAC-B (BIFIDOBACTERIUM LACTIS) [Concomitant]
  29. INDAPAMIDE [Concomitant]
  30. EPADEL-S (ETHYL ICOSAPENTATE) [Concomitant]
  31. RABEPRAZOLE SODIUM [Concomitant]
  32. TICLOPIDINE HCL [Concomitant]
  33. WARFARIN SODIUM [Concomitant]
  34. FLOMOX (CEFCAPENE PIVOXIL HYDROCHLORDE) [Concomitant]
  35. SOLU-MEDROL [Suspect]
     Indication: LUPUS NEPHRITIS
     Dosage: 1 G, /D ; 500 MG, /D ; 500 MG, /D, 500 MG, /D ; 1000 MG, /D ; 1000 MG, /D
     Dates: start: 20080501, end: 20080502
  36. SOLU-MEDROL [Suspect]
     Indication: LUPUS NEPHRITIS
     Dosage: 1 G, /D ; 500 MG, /D ; 500 MG, /D, 500 MG, /D ; 1000 MG, /D ; 1000 MG, /D
     Dates: start: 20070723, end: 20070724
  37. SOLU-MEDROL [Suspect]
     Indication: LUPUS NEPHRITIS
     Dosage: 1 G, /D ; 500 MG, /D ; 500 MG, /D, 500 MG, /D ; 1000 MG, /D ; 1000 MG, /D
     Dates: start: 20080730, end: 20080730
  38. SOLU-MEDROL [Suspect]
     Indication: LUPUS NEPHRITIS
     Dosage: 1 G, /D ; 500 MG, /D ; 500 MG, /D, 500 MG, /D ; 1000 MG, /D ; 1000 MG, /D
     Dates: start: 20071019, end: 20071021
  39. SOLU-MEDROL [Suspect]
     Indication: LUPUS NEPHRITIS
     Dosage: 1 G, /D ; 500 MG, /D ; 500 MG, /D, 500 MG, /D ; 1000 MG, /D ; 1000 MG, /D
     Dates: start: 20071114, end: 20071116
  40. SOLU-MEDROL [Suspect]
     Indication: LUPUS NEPHRITIS
     Dosage: 1 G, /D ; 500 MG, /D ; 500 MG, /D, 500 MG, /D ; 1000 MG, /D ; 1000 MG, /D
     Dates: start: 20090307, end: 20090309
  41. SOLU-MEDROL [Suspect]
     Indication: LUPUS NEPHRITIS
     Dosage: 1 G, /D ; 500 MG, /D ; 500 MG, /D, 500 MG, /D ; 1000 MG, /D ; 1000 MG, /D
     Dates: start: 20080226, end: 20080228
  42. MEDROL [Suspect]
     Indication: LUPUS NEPHRITIS
     Dosage: SEE IMAGE
     Route: 048
     Dates: start: 20090608
  43. MEDROL [Suspect]
     Indication: LUPUS NEPHRITIS
     Dosage: SEE IMAGE
     Route: 048
     Dates: start: 20080229, end: 20080611
  44. MEDROL [Suspect]
     Indication: LUPUS NEPHRITIS
     Dosage: SEE IMAGE
     Route: 048
     Dates: start: 20080918, end: 20090205
  45. MEDROL [Suspect]
     Indication: LUPUS NEPHRITIS
     Dosage: SEE IMAGE
     Route: 048
     Dates: start: 20090421, end: 20090524
  46. MEDROL [Suspect]
     Indication: LUPUS NEPHRITIS
     Dosage: SEE IMAGE
     Route: 048
     Dates: start: 20090525, end: 20090607
  47. MEDROL [Suspect]
     Indication: LUPUS NEPHRITIS
     Dosage: SEE IMAGE
     Route: 048
     Dates: start: 20080710, end: 20080729
  48. MEDROL [Suspect]
     Indication: LUPUS NEPHRITIS
     Dosage: SEE IMAGE
     Route: 048
     Dates: start: 20090206, end: 20090420
  49. MEDROL [Suspect]
     Indication: LUPUS NEPHRITIS
     Dosage: SEE IMAGE
     Route: 048
     Dates: start: 20080612, end: 20080709
  50. MEDROL [Suspect]
     Indication: LUPUS NEPHRITIS
     Dosage: SEE IMAGE
     Route: 048
     Dates: start: 20080730, end: 20090917
  51. CELLCEPT [Concomitant]
  52. PL GRAN (CAFFEINE, PARACETAMOL, PROMETHAZINE METHYLENE DISALICYLATE, S [Concomitant]
  53. COCARL (PARACETAMOL) [Concomitant]
  54. JUVELA N (TOCOPHERYL NICOTINATE) [Concomitant]
  55. PRIMPERAN INJ [Concomitant]
  56. PLETAL [Concomitant]

REACTIONS (13)
  - GASTROENTERITIS [None]
  - PHARYNGITIS [None]
  - PLEURISY [None]
  - APPENDICITIS [None]
  - DIARRHOEA [None]
  - PNEUMONIA [None]
  - MYALGIA [None]
  - HYPERLIPIDAEMIA [None]
  - BACK PAIN [None]
  - DEHYDRATION [None]
  - NEPHROGENIC ANAEMIA [None]
  - RHINITIS ALLERGIC [None]
  - LUPUS NEPHRITIS [None]
